FAERS Safety Report 7033769-0 (Version None)
Quarter: 2010Q4

REPORT INFORMATION
  Report Type: 
  Country: None (occurrence: None)
  Receive Date: 20101007
  Receipt Date: 20100927
  Transmission Date: 20110411
  Serious: Yes (Other)
  Sender: FDA-Public Use
  Company Number: PHHY2010CA64349

PATIENT
  Sex: Male

DRUGS (4)
  1. SANDOSTATIN LAR [Suspect]
     Indication: CROHN'S DISEASE
     Dosage: 30 MG EVERY 4 WEEKS
     Route: 030
     Dates: start: 20100830
  2. LANTUS [Concomitant]
     Dosage: 32 U, QD
  3. HUMALOG [Concomitant]
     Dosage: 10-16 U
  4. DIAMICRON [Concomitant]
     Dosage: 30 MG, QD

REACTIONS (3)
  - BLOOD GLUCOSE INCREASED [None]
  - CONFUSIONAL STATE [None]
  - LOSS OF CONSCIOUSNESS [None]
